FAERS Safety Report 7864591-0 (Version None)
Quarter: 2011Q4

REPORT INFORMATION
  Report Type: 
  Country: None (occurrence: None)
  Receive Date: 20111028
  Receipt Date: 20110117
  Transmission Date: 20120403
  Serious: No
  Sender: FDA-Public Use
  Company Number: US-GLAXOSMITHKLINE-A0906497A

PATIENT
  Age: 45 Year
  Sex: Female

DRUGS (2)
  1. NO CONCURRENT MEDICATION [Concomitant]
  2. IMITREX [Suspect]
     Indication: MIGRAINE
     Route: 045
     Dates: start: 19940101, end: 19940101

REACTIONS (2)
  - FEELING ABNORMAL [None]
  - AGITATION [None]
